FAERS Safety Report 12964923 (Version 2)
Quarter: 2017Q1

REPORT INFORMATION
  Report Type: Spontaneous
  Country: US (occurrence: US)
  Receive Date: 20161122
  Receipt Date: 20170216
  Transmission Date: 20170428
  Serious: No
  Sender: FDA-Public Use
  Company Number: US-ALLERGAN-1673156US

PATIENT
  Age: 29 Year
  Sex: Female

DRUGS (3)
  1. KYBELLA [Suspect]
     Active Substance: DEOXYCHOLIC ACID
     Indication: FAT TISSUE INCREASED
     Dosage: 4.8 ML, SINGLE
     Route: 058
     Dates: start: 20160504, end: 20160504
  2. KYBELLA [Suspect]
     Active Substance: DEOXYCHOLIC ACID
     Dosage: 4.2 ML, UNK
     Route: 058
     Dates: start: 20160615, end: 20160615
  3. KYBELLA [Suspect]
     Active Substance: DEOXYCHOLIC ACID
     Dosage: 4 ML, UNK
     Route: 058
     Dates: start: 20160714, end: 20160714

REACTIONS (2)
  - Therapeutic response decreased [Unknown]
  - Mass [Not Recovered/Not Resolved]

NARRATIVE: CASE EVENT DATE: 201610
